FAERS Safety Report 16923011 (Version 1)
Quarter: 2019Q4

REPORT INFORMATION
  Report Type: Spontaneous
  Country: DE (occurrence: DE)
  Receive Date: 20191016
  Receipt Date: 20191016
  Transmission Date: 20200122
  Serious: Yes (Hospitalization)
  Sender: FDA-Public Use
  Company Number: DE-TEVA-2019-DE-1121504

PATIENT
  Age: 15 Year
  Sex: Male
  Weight: 77 kg

DRUGS (2)
  1. RISPERIDON [Suspect]
     Active Substance: RISPERIDONE
     Indication: DEPRESSION
     Dosage: 0.5 MG
     Route: 048
  2. QUETIAPIN [Suspect]
     Active Substance: QUETIAPINE
     Indication: DEPRESSION
     Dosage: 50 MG
     Route: 048

REACTIONS (3)
  - Product dose omission [Unknown]
  - Suicidal behaviour [Unknown]
  - Flashback [Unknown]

NARRATIVE: CASE EVENT DATE: 20190209
